FAERS Safety Report 25975274 (Version 1)
Quarter: 2025Q4

REPORT INFORMATION
  Report Type: Spontaneous
  Country: TW (occurrence: TW)
  Receive Date: 20251029
  Receipt Date: 20251029
  Transmission Date: 20260117
  Serious: Yes (Death, Other)
  Sender: INCYTE
  Company Number: TW-002147023-NVSC2025TW164925

PATIENT

DRUGS (1)
  1. RUXOLITINIB [Suspect]
     Active Substance: RUXOLITINIB
     Indication: Myelofibrosis
     Dosage: UNK
     Route: 065

REACTIONS (3)
  - Myelofibrosis [Fatal]
  - Malignant neoplasm progression [Fatal]
  - Drug ineffective [Unknown]
